FAERS Safety Report 10159251 (Version 1)
Quarter: 2014Q2

REPORT INFORMATION
  Report Type: Spontaneous
  Country: MX (occurrence: MX)
  Receive Date: 20140508
  Receipt Date: 20140508
  Transmission Date: 20141212
  Serious: Yes (Other)
  Sender: FDA-Public Use
  Company Number: MX-JNJFOC-20140419508

PATIENT
  Age: 9 Year
  Sex: Male
  Weight: 26 kg

DRUGS (2)
  1. RISPERDAL [Suspect]
     Indication: ATTENTION DEFICIT/HYPERACTIVITY DISORDER
     Route: 048
     Dates: start: 20140403, end: 20140423
  2. RISPERDAL [Suspect]
     Indication: ATTENTION DEFICIT/HYPERACTIVITY DISORDER
     Route: 048
     Dates: start: 20140423

REACTIONS (4)
  - Haemoptysis [Unknown]
  - Haemorrhage [Unknown]
  - Weight increased [Unknown]
  - Off label use [Unknown]
